FAERS Safety Report 7086919-4 (Version None)
Quarter: 2010Q4

REPORT INFORMATION
  Report Type: 
  Country: None (occurrence: None)
  Receive Date: 20101106
  Receipt Date: 20100916
  Transmission Date: 20110411
  Serious: No
  Sender: FDA-Public Use
  Company Number: US-WYE-H15214010

PATIENT
  Sex: Female
  Weight: 62.65 kg

DRUGS (5)
  1. PREMARIN [Suspect]
     Indication: HOT FLUSH
     Route: 048
     Dates: start: 19870101
  2. PREMARIN [Suspect]
     Indication: MIGRAINE
  3. PREMARIN [Suspect]
     Indication: MOOD SWINGS
  4. OGEN [Concomitant]
  5. ESTRACE [Concomitant]

REACTIONS (3)
  - MIGRAINE [None]
  - NAUSEA [None]
  - VOMITING [None]
